FAERS Safety Report 10082602 (Version 1)
Quarter: 2014Q2

REPORT INFORMATION
  Report Type: Spontaneous
  Country: IT (occurrence: IT)
  Receive Date: 20140416
  Receipt Date: 20140416
  Transmission Date: 20141212
  Serious: Yes (Other)
  Sender: FDA-Public Use
  Company Number: IT-MYLANLABS-2014S1008039

PATIENT
  Age: 90 Year
  Sex: Female

DRUGS (7)
  1. METFORMIN [Suspect]
     Indication: TYPE 2 DIABETES MELLITUS
     Dosage: 1500 MG DAILY
     Route: 048
     Dates: start: 20130101, end: 20131218
  2. HUMALOG [Suspect]
     Indication: TYPE 2 DIABETES MELLITUS
     Dosage: 15 LU DAILY
     Route: 058
     Dates: start: 20130101, end: 20131218
  3. CARDIOASPIRIN [Concomitant]
     Indication: PRODUCT USED FOR UNKNOWN INDICATION
     Route: 048
  4. TRIATEC /00885601/ [Concomitant]
     Indication: PRODUCT USED FOR UNKNOWN INDICATION
     Route: 048
  5. CONGESCOR [Concomitant]
     Indication: PRODUCT USED FOR UNKNOWN INDICATION
  6. TACHIDOL [Concomitant]
     Indication: PRODUCT USED FOR UNKNOWN INDICATION
     Dosage: 500MG/30MG
     Route: 048
  7. LANSOX [Concomitant]
     Indication: PRODUCT USED FOR UNKNOWN INDICATION
     Route: 048

REACTIONS (4)
  - Confusional state [Recovering/Resolving]
  - Hyperhidrosis [Recovering/Resolving]
  - Hypoglycaemia [Recovering/Resolving]
  - Hyponatraemic syndrome [Recovering/Resolving]
